FAERS Safety Report 20539227 (Version 1)
Quarter: 2022Q1

REPORT INFORMATION
  Report Type: Spontaneous
  Country: US (occurrence: None)
  Receive Date: 20220302
  Receipt Date: 20220302
  Transmission Date: 20220424
  Serious: Yes (Other)
  Sender: FDA-Public Use
  Company Number: 2022A086453

PATIENT

DRUGS (4)
  1. PRILOSEC [Suspect]
     Active Substance: OMEPRAZOLE MAGNESIUM
     Dosage: UNKNOWN DOSE
     Route: 048
     Dates: start: 2009
  2. PRILOSEC [Suspect]
     Active Substance: OMEPRAZOLE MAGNESIUM
     Dosage: TWO TIMES A DAY
     Route: 048
     Dates: start: 201511
  3. CYTARABINE [Suspect]
     Active Substance: CYTARABINE
     Route: 065
  4. ZANTAC [Concomitant]
     Active Substance: RANITIDINE HYDROCHLORIDE
     Indication: Gastrooesophageal reflux disease

REACTIONS (9)
  - Hip fracture [Unknown]
  - Fall [Unknown]
  - Body temperature increased [Unknown]
  - Leukaemia [Unknown]
  - Basal cell carcinoma [Unknown]
  - Hypersensitivity [Unknown]
  - Renal pain [Recovered/Resolved]
  - Nasal discomfort [Unknown]
  - Corneal scar [Unknown]

NARRATIVE: CASE EVENT DATE: 20130313
